FAERS Safety Report 17427257 (Version 1)
Quarter: 2020Q1

REPORT INFORMATION
  Report Type: Spontaneous
  Country: GB (occurrence: GB)
  Receive Date: 20200217
  Receipt Date: 20200217
  Transmission Date: 20200409
  Serious: Yes (Other)
  Sender: FDA-Public Use
  Company Number: GB-ROCHE-2545683

PATIENT
  Age: 45 Year
  Sex: Male

DRUGS (1)
  1. OCREVUS [Suspect]
     Active Substance: OCRELIZUMAB
     Indication: PRIMARY PROGRESSIVE MULTIPLE SCLEROSIS
     Dosage: DOSES ( DAY 1 AND DAY 15 ) AND 1ST 6 MONTHLY INFUSION.
     Route: 065

REACTIONS (1)
  - Hepatitis B reactivation [Unknown]
